FAERS Safety Report 11506492 (Version 1)
Quarter: 2015Q3

REPORT INFORMATION
  Report Type: Spontaneous
  Country: US (occurrence: US)
  Receive Date: 20150915
  Receipt Date: 20150915
  Transmission Date: 20151125
  Serious: No
  Sender: FDA-Public Use
  Company Number: US-ROCHE-794195

PATIENT
  Age: 60 Year
  Sex: Female

DRUGS (5)
  1. DILANTIN [Concomitant]
     Active Substance: PHENYTOIN
     Route: 065
  2. PHENOBARBITAL. [Concomitant]
     Active Substance: PHENOBARBITAL
     Route: 065
  3. RIBAVIRIN. [Suspect]
     Active Substance: RIBAVIRIN
     Indication: HEPATITIS C
     Route: 048
     Dates: start: 200612, end: 200710
  4. PEGASYS [Suspect]
     Active Substance: PEGINTERFERON ALFA-2A
     Route: 065
     Dates: start: 200704, end: 200710
  5. PEGASYS [Suspect]
     Active Substance: PEGINTERFERON ALFA-2A
     Indication: CHRONIC HEPATITIS C
     Route: 065
     Dates: start: 200612, end: 200704

REACTIONS (2)
  - Viral load increased [Not Recovered/Not Resolved]
  - White blood cell count decreased [Unknown]

NARRATIVE: CASE EVENT DATE: 200704
